FAERS Safety Report 6523147-2 (Version None)
Quarter: 2009Q4

REPORT INFORMATION
  Report Type: 
  Country: None (occurrence: None)
  Receive Date: 20091222
  Receipt Date: 20091208
  Transmission Date: 20100525
  Serious: Yes (Other)
  Sender: FDA-Public Use
  Company Number: 003031

PATIENT
  Age: 44 Year
  Sex: Male

DRUGS (3)
  1. PREDNISOLONE [Suspect]
     Dosage: 5 MG QD
  2. MYCOPHENOLATE MOFETIL [Suspect]
     Dosage: 1000 MG BID
  3. CYCLOSPORINE [Suspect]
     Dosage: 150 MG BID

REACTIONS (2)
  - FABRY'S DISEASE [None]
  - PALPITATIONS [None]
